FAERS Safety Report 10412989 (Version 2)
Quarter: 2014Q3

REPORT INFORMATION
  Report Type: Report from Study
  Country: US (occurrence: US)
  Receive Date: 20140827
  Receipt Date: 20140909
  Transmission Date: 20150326
  Serious: Yes (Other)
  Sender: FDA-Public Use
  Company Number: US-ABBVIE-14P-163-1275007-00

PATIENT
  Sex: Female

DRUGS (1)
  1. LUPRON DEPOT [Suspect]
     Active Substance: LEUPROLIDE ACETATE
     Indication: ENDOMETRIOSIS
     Route: 030
     Dates: start: 2000

REACTIONS (9)
  - Ovarian cyst ruptured [Unknown]
  - Pyrexia [Unknown]
  - Dyspareunia [Unknown]
  - Pain [Recovered/Resolved]
  - Abortion spontaneous [Unknown]
  - Loss of consciousness [Recovered/Resolved]
  - Emotional disorder [Recovered/Resolved]
  - Endometriosis [Unknown]
  - Insomnia [Unknown]

NARRATIVE: CASE EVENT DATE: 2000
